FAERS Safety Report 25282901 (Version 1)
Quarter: 2025Q2

REPORT INFORMATION
  Report Type: Spontaneous
  Country: US (occurrence: US)
  Receive Date: 20250508
  Receipt Date: 20250508
  Transmission Date: 20250716
  Serious: Yes (Other)
  Sender: INCYTE
  Company Number: US-EVENT-002664

PATIENT
  Age: 14 Year

DRUGS (2)
  1. JAKAFI [Suspect]
     Active Substance: RUXOLITINIB
     Indication: Leukaemia
     Route: 065
  2. BLINATUMOMAB [Concomitant]
     Active Substance: BLINATUMOMAB
     Indication: Leukaemia
     Route: 065

REACTIONS (3)
  - Cytopenia [Unknown]
  - Drug effective for unapproved indication [Unknown]
  - Off label use [Unknown]
